FAERS Safety Report 9109700 (Version 8)
Quarter: 2013Q3

REPORT INFORMATION
  Report Type: Spontaneous
  Country: US (occurrence: US)
  Receive Date: 20130222
  Receipt Date: 20130703
  Transmission Date: 20140515
  Serious: Yes (Hospitalization)
  Sender: FDA-Public Use
  Company Number: US-UCBSA-078560

PATIENT
  Age: 59 Year
  Sex: Male

DRUGS (2)
  1. CIMZIA [Suspect]
     Indication: CROHN^S DISEASE
     Dosage: EXP DATE: ??/SEP/2015
     Route: 058
     Dates: start: 20090406
  2. REMICADE [Concomitant]
     Indication: CROHN^S DISEASE
     Dates: start: 2005, end: 2009

REACTIONS (4)
  - Abscess intestinal [Recovering/Resolving]
  - Wound [Not Recovered/Not Resolved]
  - Arthralgia [Not Recovered/Not Resolved]
  - Musculoskeletal stiffness [Not Recovered/Not Resolved]
